FAERS Safety Report 9892333 (Version 2)
Quarter: 2014Q3

REPORT INFORMATION
  Report Type: Spontaneous
  Country: US (occurrence: US)
  Receive Date: 20140212
  Receipt Date: 20140721
  Transmission Date: 20150326
  Serious: Yes (Hospitalization, Other)
  Sender: FDA-Public Use
  Company Number: US-009507513-1402USA005808

PATIENT
  Sex: Female

DRUGS (1)
  1. NUVARING [Suspect]
     Active Substance: ETHINYL ESTRADIOL\ETONOGESTREL
     Indication: CONTRACEPTION
     Dosage: UNK
     Route: 067
     Dates: start: 20090202, end: 200906

REACTIONS (11)
  - Plantar fasciitis [Unknown]
  - Vena cava filter insertion [Unknown]
  - Coeliac disease [Unknown]
  - Pulmonary embolism [Unknown]
  - Blood potassium decreased [Recovering/Resolving]
  - Vitamin B12 deficiency [Unknown]
  - Anaemia [Unknown]
  - Deep vein thrombosis [Unknown]
  - Factor V Leiden mutation [Unknown]
  - Blood magnesium decreased [Unknown]
  - C-reactive protein increased [Unknown]

NARRATIVE: CASE EVENT DATE: 2009
